FAERS Safety Report 11899233 (Version 8)
Quarter: 2021Q1

REPORT INFORMATION
  Report Type: Spontaneous
  Country: US (occurrence: US)
  Receive Date: 20160108
  Receipt Date: 20210204
  Transmission Date: 20210419
  Serious: No
  Sender: FDA-Public Use
  Company Number: US-PFIZER INC-2016006840

PATIENT
  Age: 64 Year
  Sex: Male
  Weight: 91 kg

DRUGS (7)
  1. EXCEDRIN [Concomitant]
     Active Substance: ACETAMINOPHEN\ASPIRIN\CAFFEINE
     Indication: PAIN
     Dosage: UNK, AS NEEDED
     Route: 048
  2. KLONOPIN [Concomitant]
     Active Substance: CLONAZEPAM
     Indication: ANXIETY
     Dosage: 1.5 MG, AS NEEDED
     Route: 048
  3. CAVERJECT [Suspect]
     Active Substance: ALPROSTADIL
     Indication: ERECTILE DYSFUNCTION
     Dosage: 20 UG, AS NEEDED
     Dates: start: 2015
  4. CAVERJECT [Suspect]
     Active Substance: ALPROSTADIL
     Dosage: 20 UG, AS NEEDED, [1 CC INTO CORPORA CAVERNOSUM OF PENIS AS NEEDED]
  5. ATRIPLA [Concomitant]
     Active Substance: EFAVIRENZ\EMTRICITABINE\TENOFOVIR DISOPROXIL FUMARATE
     Indication: HIV INFECTION
     Dosage: 300 MG, 1X/DAY
     Route: 048
  6. CAVERJECT [Suspect]
     Active Substance: ALPROSTADIL
     Dosage: 40 UG, UNK
  7. EXCEDRIN [Concomitant]
     Active Substance: ACETAMINOPHEN\ASPIRIN\CAFFEINE
     Indication: HEADACHE

REACTIONS (7)
  - Drug ineffective [Recovered/Resolved]
  - Fine motor skill dysfunction [Recovered/Resolved]
  - Product reconstitution quality issue [Unknown]
  - Depression [Unknown]
  - Tremor [Not Recovered/Not Resolved]
  - Product quality issue [Unknown]
  - Visual impairment [Recovered/Resolved]

NARRATIVE: CASE EVENT DATE: 2015
